FAERS Safety Report 22760450 (Version 3)
Quarter: 2024Q3

REPORT INFORMATION
  Report Type: Spontaneous
  Country: GB (occurrence: GB)
  Receive Date: 20230728
  Receipt Date: 20240708
  Transmission Date: 20241017
  Serious: Yes (Hospitalization, Other)
  Sender: MYLAN
  Company Number: GB-MYLANLABS-2023M1078418

PATIENT
  Age: 38 Year
  Sex: Male

DRUGS (70)
  1. CLOZARIL [Suspect]
     Active Substance: CLOZAPINE
     Indication: Schizoaffective disorder
     Dosage: 100MG IN THE MORNING, 400MG IN THE EVENING
     Route: 065
     Dates: start: 200301
  2. CLOZARIL [Suspect]
     Active Substance: CLOZAPINE
     Indication: Schizophrenia
     Dosage: 100MG IN THE MORNING, 400MG IN THE EVENING
     Route: 065
     Dates: start: 200307
  3. CLOZARIL [Suspect]
     Active Substance: CLOZAPINE
     Dosage: 100MG IN THE MORNING, 400MG IN THE EVENING
     Route: 065
     Dates: start: 200311
  4. CLOZARIL [Suspect]
     Active Substance: CLOZAPINE
     Dosage: 100MG IN THE MORNING, 400MG IN THE EVENING
     Route: 065
     Dates: start: 200407
  5. CLOZARIL [Suspect]
     Active Substance: CLOZAPINE
     Dosage: 100MG IN THE MORNING, 400MG IN THE EVENING
     Route: 065
     Dates: start: 200411
  6. CLOZARIL [Suspect]
     Active Substance: CLOZAPINE
     Dosage: 100MG IN THE MORNING, 400MG IN THE EVENING START DATE: -MAY-2005
     Route: 065
     Dates: start: 200505
  7. CLOZARIL [Suspect]
     Active Substance: CLOZAPINE
     Dosage: 100MG IN THE MORNING, 400MG IN THE EVENING
     Route: 065
     Dates: start: 200511
  8. CLOZARIL [Suspect]
     Active Substance: CLOZAPINE
     Dosage: 375 MILLIGRAM, QD (375MG IN THE EVENING )
     Route: 065
     Dates: start: 200605
  9. CLOZARIL [Suspect]
     Active Substance: CLOZAPINE
     Dosage: 350 MILLIGRAM, QD (350MG IN THE EVENING)
     Route: 065
     Dates: start: 200605
  10. CLOZARIL [Suspect]
     Active Substance: CLOZAPINE
     Dosage: 325 MILLIGRAM, QD (325MG IN THE EVENING)
     Route: 065
     Dates: start: 200806
  11. CLOZARIL [Suspect]
     Active Substance: CLOZAPINE
     Dosage: 275 MILLIGRAM, QD (275MG IN THE EVENING)
     Route: 065
     Dates: start: 200811
  12. CLOZARIL [Suspect]
     Active Substance: CLOZAPINE
     Dosage: 250 MILLIGRAM, QD (250MG IN THE EVENING)
     Route: 065
     Dates: start: 200909
  13. CLOZARIL [Suspect]
     Active Substance: CLOZAPINE
     Dosage: 225 MILLIGRAM, QD (225MG IN THE EVENING)
     Route: 065
     Dates: start: 201008
  14. CLOZARIL [Suspect]
     Active Substance: CLOZAPINE
     Dosage: 200 MILLIGRAM, QD (200MG IN THE EVENING)
     Route: 065
     Dates: start: 201012, end: 201201
  15. CLOZARIL [Suspect]
     Active Substance: CLOZAPINE
     Dosage: 500 MILLIGRAM, QD (500MG DAILY)
     Route: 065
     Dates: start: 2013
  16. CLOZARIL [Suspect]
     Active Substance: CLOZAPINE
     Dosage: 100MG IN THE MORNING, 300MG AT NIGHT
     Route: 065
     Dates: start: 201407, end: 201503
  17. CLOZARIL [Suspect]
     Active Substance: CLOZAPINE
     Dosage: 50MG IN THE MORNING, 250MG IN THE EVENING
     Route: 065
     Dates: start: 201509
  18. CLOZARIL [Suspect]
     Active Substance: CLOZAPINE
     Dosage: 200MG IN THE MORNING, 300MG AT NIGHT
     Route: 065
     Dates: start: 201605
  19. CLOZARIL [Suspect]
     Active Substance: CLOZAPINE
     Dosage: 200MG IN THE MORNING, 300MG AT NIGHT
     Route: 065
     Dates: start: 201606
  20. CLOZARIL [Suspect]
     Active Substance: CLOZAPINE
     Dosage: 200MG IN THE MORNING, 300MG AT NIGHT
     Route: 065
     Dates: start: 201607
  21. CLOZARIL [Suspect]
     Active Substance: CLOZAPINE
     Dosage: 200MG IN THE MORNING, 300MG AT NIGHT)
     Route: 065
     Dates: start: 201611
  22. CLOZARIL [Suspect]
     Active Substance: CLOZAPINE
     Dosage: 400 MILLIGRAM, QD (400MG AT NIGHT)
     Route: 065
     Dates: start: 201701
  23. CLOZARIL [Suspect]
     Active Substance: CLOZAPINE
     Dosage: 450 MILLIGRAM, QD (450MG AT NIGHT)
     Route: 065
     Dates: start: 2019
  24. CLOZARIL [Suspect]
     Active Substance: CLOZAPINE
     Dosage: 225 MILLIGRAM, BID (225MG TWICE DAILY)
     Route: 065
     Dates: start: 201910, end: 20220112
  25. CLOZARIL [Suspect]
     Active Substance: CLOZAPINE
     Dosage: UNK
     Route: 048
     Dates: start: 20230720
  26. CITALOPRAM [Suspect]
     Active Substance: CITALOPRAM\CITALOPRAM HYDROBROMIDE
     Indication: Depressed mood
     Dosage: 20 MILLIGRAM, QD (20MG DAILY)
     Route: 065
     Dates: start: 200301
  27. CITALOPRAM [Suspect]
     Active Substance: CITALOPRAM\CITALOPRAM HYDROBROMIDE
     Dosage: 20 MILLIGRAM, QD (20MG DAILY)
     Route: 065
     Dates: start: 200311
  28. CITALOPRAM [Suspect]
     Active Substance: CITALOPRAM\CITALOPRAM HYDROBROMIDE
     Dosage: 20 MILLIGRAM, QD (20MG DAILY)
     Route: 065
     Dates: start: 200407
  29. CITALOPRAM [Suspect]
     Active Substance: CITALOPRAM\CITALOPRAM HYDROBROMIDE
     Dosage: 20 MILLIGRAM, QD (20MG DAILY START DATE: NOV-2004)
     Route: 065
  30. CITALOPRAM [Suspect]
     Active Substance: CITALOPRAM\CITALOPRAM HYDROBROMIDE
     Dosage: 20 MILLIGRAM, QD (20MG DAILY)
     Route: 065
     Dates: start: 200505
  31. CITALOPRAM [Suspect]
     Active Substance: CITALOPRAM\CITALOPRAM HYDROBROMIDE
     Dosage: UNK
     Route: 065
     Dates: start: 2013
  32. CITALOPRAM [Suspect]
     Active Substance: CITALOPRAM\CITALOPRAM HYDROBROMIDE
     Dosage: 30 MILLIGRAM, QD (30MG DAILY)
     Route: 065
     Dates: start: 201407, end: 201503
  33. RISPERIDONE [Suspect]
     Active Substance: RISPERIDONE
     Indication: Product used for unknown indication
     Dosage: UNK
     Route: 065
     Dates: start: 200210
  34. RISPERIDONE [Suspect]
     Active Substance: RISPERIDONE
     Dosage: UNK
     Route: 065
     Dates: start: 201302
  35. AMISULPRIDE [Suspect]
     Active Substance: AMISULPRIDE
     Indication: Affective disorder
     Dosage: 200 MILLIGRAM, QD (200MG DAILY)
     Route: 065
     Dates: start: 200301
  36. AMISULPRIDE [Suspect]
     Active Substance: AMISULPRIDE
     Dosage: 100 MILLIGRAM, QD (100MG DAILY)
     Route: 065
     Dates: start: 200307
  37. AMISULPRIDE [Suspect]
     Active Substance: AMISULPRIDE
     Dosage: BID (UNKNOWN DOSE IN THE MORNING, 100MG IN THE EVENING)
     Route: 065
     Dates: start: 200311
  38. AMISULPRIDE [Suspect]
     Active Substance: AMISULPRIDE
     Dosage: 100 MILLIGRAM, QD (100MG DAILY)
     Route: 065
     Dates: start: 200407
  39. AMISULPRIDE [Suspect]
     Active Substance: AMISULPRIDE
     Dosage: DAILY (START DATE: NOV-2004)
     Route: 065
  40. AMISULPRIDE [Suspect]
     Active Substance: AMISULPRIDE
     Dosage: 50 MILLIGRAM, QD (50MG DAILY)
     Route: 065
     Dates: start: 200505
  41. AMISULPRIDE [Suspect]
     Active Substance: AMISULPRIDE
     Dosage: 50 MILLIGRAM, BID (50MG TWICE DAILY)
     Route: 065
     Dates: start: 2013
  42. AMISULPRIDE [Suspect]
     Active Substance: AMISULPRIDE
     Dosage: 50 MILLIGRAM, BID (50MG TWICE DAILY)
     Route: 065
     Dates: start: 201406, end: 201503
  43. AMISULPRIDE [Suspect]
     Active Substance: AMISULPRIDE
     Dosage: 200 MILLIGRAM, BID (200MG TWICE DAILY)
     Route: 065
     Dates: start: 201509
  44. AMISULPRIDE [Suspect]
     Active Substance: AMISULPRIDE
     Dosage: 200MG TWICE DAILY, 600MG AT NIGHT
     Route: 065
     Dates: start: 201605
  45. AMISULPRIDE [Suspect]
     Active Substance: AMISULPRIDE
     Dosage: 200MG IN THE MORNING, 600MG AT NIGHT)
     Route: 065
     Dates: start: 201606
  46. AMISULPRIDE [Suspect]
     Active Substance: AMISULPRIDE
     Dosage: 100MG IN THE MORNING, 400MG AT NIGHT START DATE: JUL-2016
     Route: 065
     Dates: start: 201607
  47. AMISULPRIDE [Suspect]
     Active Substance: AMISULPRIDE
     Dosage: UNK
     Route: 065
     Dates: start: 202201
  48. LORAZEPAM [Suspect]
     Active Substance: LORAZEPAM
     Indication: Product used for unknown indication
     Dosage: 1 MILLIGRAM, BID ( (PO/IM) 1-2MG (MAX 4MG IN 24 HOURS START DATE: ??-SEP-2015)
     Route: 065
     Dates: start: 201509
  49. FLUPENTIXOL DECANOATE [Suspect]
     Active Substance: FLUPENTIXOL DECANOATE
     Indication: Product used for unknown indication
     Dosage: 400 MILLIGRAM, QW (400MG WEEKLY)
     Route: 065
     Dates: start: 202208
  50. FLUPENTIXOL DECANOATE [Suspect]
     Active Substance: FLUPENTIXOL DECANOATE
     Dosage: 200 MILLIGRAM, QW (200MG WEEKLY)
     Route: 065
     Dates: start: 202212, end: 202303
  51. FLUPENTIXOL DECANOATE [Suspect]
     Active Substance: FLUPENTIXOL DECANOATE
     Dosage: 200 MILLIGRAM, QW (200MG WEEKLY)
     Route: 065
     Dates: start: 202303, end: 202305
  52. CARIPRAZINE [Suspect]
     Active Substance: CARIPRAZINE
     Indication: Product used for unknown indication
     Dosage: 3 MILLIGRAM, QD (3MG DAILY)
     Route: 065
     Dates: start: 202208
  53. CARIPRAZINE [Suspect]
     Active Substance: CARIPRAZINE
     Dosage: 6 MILLIGRAM, QD (6MG DAILY)
     Route: 065
     Dates: start: 202212, end: 202303
  54. CARIPRAZINE [Suspect]
     Active Substance: CARIPRAZINE
     Dosage: 6 MILLIGRAM, QD (6MG DAILY)
     Route: 065
     Dates: start: 202303, end: 202305
  55. VALPROATE SODIUM [Suspect]
     Active Substance: VALPROATE SODIUM
     Indication: Product used for unknown indication
     Dosage: 750 MILLIGRAM, BID (750MG TWICE DAILY)
     Route: 065
     Dates: start: 201605
  56. VALPROATE SODIUM [Suspect]
     Active Substance: VALPROATE SODIUM
     Dosage: 750 MILLIGRAM, BID (750MG TWICE DAILY)
     Route: 065
     Dates: start: 201606
  57. VALPROATE SODIUM [Suspect]
     Active Substance: VALPROATE SODIUM
     Dosage: 500 MILLIGRAM, BID (500MG TWICE DAILY)
     Route: 065
     Dates: start: 201607
  58. VALPROATE SODIUM [Suspect]
     Active Substance: VALPROATE SODIUM
     Dosage: 750 MILLIGRAM, BID (750MG TWICE DAILY)
     Route: 065
     Dates: start: 202303, end: 202305
  59. HALOPERIDOL [Suspect]
     Active Substance: HALOPERIDOL
     Indication: Product used for unknown indication
     Dosage: UNK
     Route: 065
  60. FERROUS SULFATE [Suspect]
     Active Substance: FERROUS SULFATE
     Indication: Product used for unknown indication
     Dosage: UNK
     Route: 065
  61. FOLIC ACID\IRON\MINERALS\VITAMINS [Concomitant]
     Active Substance: FOLIC ACID\IRON\MINERALS\VITAMINS
     Dosage: 1 DOSAGE FORM, QD (ONE TABLET ONCE DAILY)
     Route: 065
  62. VITAMIN B12 [Concomitant]
     Active Substance: CYANOCOBALAMIN
     Dosage: 1 DOSAGE FORM, BID (ONE TABLET TWICE DAILY)
     Route: 065
  63. THIAMINE [Concomitant]
     Active Substance: THIAMINE
     Dosage: 100 MILLIGRAM, BID (100MG TWICE DAILY)
     Route: 065
  64. CHOLECALCIFEROL [Concomitant]
     Active Substance: CHOLECALCIFEROL
     Dosage: 800 INTERNATIONAL UNIT, QD (800 UNITS ONCE DAILY)
     Route: 065
  65. FLEXITOL HEEL [Concomitant]
     Dosage: UNK, BID
     Route: 065
  66. PROMETHAZINE [Concomitant]
     Active Substance: PROMETHAZINE HYDROCHLORIDE
     Dosage: 25 MILLIGRAM (MAX 100MG IN 25 HOURS)
     Route: 065
  67. ACETAMINOPHEN [Concomitant]
     Active Substance: ACETAMINOPHEN
     Dosage: 1 GRAM (MAX 4G IN 24 HOURS)
     Route: 065
  68. LACTULOSE [Concomitant]
     Active Substance: LACTULOSE
     Dosage: 15 MILLILITER (MAX THREE TIMES DAILY)
     Route: 065
  69. PROCYCLIDINE [Concomitant]
     Active Substance: PROCYCLIDINE
     Dosage: 2.5 MILLIGRAM (MAX 10MG IN 24 HOURS)
     Route: 065
  70. ENSURE COMPACT [Concomitant]
     Dosage: UNK
     Route: 065

REACTIONS (33)
  - Suicidal ideation [Unknown]
  - Delusion [Not Recovered/Not Resolved]
  - Delusion of grandeur [Unknown]
  - Hallucination, auditory [Not Recovered/Not Resolved]
  - Neglect of personal appearance [Unknown]
  - Pneumonia aspiration [Unknown]
  - Aggression [Unknown]
  - COVID-19 [Unknown]
  - Dystonia [Unknown]
  - Mental impairment [Unknown]
  - Treatment noncompliance [Unknown]
  - Cardiac arrest [Unknown]
  - Accidental exposure to product [Unknown]
  - Thinking abnormal [Not Recovered/Not Resolved]
  - Weight decreased [Unknown]
  - Eating disorder [Unknown]
  - Insomnia [Unknown]
  - Withdrawal syndrome [Unknown]
  - Strabismus [Unknown]
  - Slow speech [Unknown]
  - Orthostatic hypotension [Unknown]
  - Acne [Unknown]
  - Vitamin D decreased [Unknown]
  - Red blood cell sedimentation rate decreased [Unknown]
  - Psoriasis [Unknown]
  - Depressed mood [Unknown]
  - Sedation [Unknown]
  - Neutrophil count decreased [Not Recovered/Not Resolved]
  - Lymphocyte count decreased [Unknown]
  - Blood prolactin increased [Unknown]
  - Drug ineffective [Unknown]
  - Off label use [Unknown]
  - Overdose [Unknown]

NARRATIVE: CASE EVENT DATE: 20021001
